FAERS Safety Report 16154547 (Version 1)
Quarter: 2019Q2

REPORT INFORMATION
  Report Type: Spontaneous
  Country: SE (occurrence: SE)
  Receive Date: 20190403
  Receipt Date: 20190403
  Transmission Date: 20190711
  Serious: Yes (Other)
  Sender: FDA-Public Use
  Company Number: SE-GILEAD-2019-0400049

PATIENT
  Age: 35 Year
  Sex: Female

DRUGS (5)
  1. TRULICITY [Concomitant]
     Active Substance: DULAGLUTIDE
     Route: 058
  2. MAVIRET [Suspect]
     Active Substance: GLECAPREVIR\PIBRENTASVIR
     Indication: HEPATITIS C
     Dosage: 3+0
     Route: 048
     Dates: start: 20181031
  3. PIOGLITAZONE. [Concomitant]
     Active Substance: PIOGLITAZONE
  4. MINDIAB [Concomitant]
     Active Substance: GLIPIZIDE
  5. SOVALDI [Suspect]
     Active Substance: SOFOSBUVIR
     Indication: HEPATITIS C
     Dosage: 1 DF QD
     Route: 048
     Dates: start: 20181031

REACTIONS (1)
  - Hypoaesthesia [Not Recovered/Not Resolved]

NARRATIVE: CASE EVENT DATE: 20181215
